FAERS Safety Report 6877400-3 (Version None)
Quarter: 2010Q3

REPORT INFORMATION
  Report Type: 
  Country: None (occurrence: None)
  Receive Date: 20100716
  Receipt Date: 20100713
  Transmission Date: 20110219
  Serious: Yes (Other)
  Sender: FDA-Public Use
  Company Number: 2010023330

PATIENT
  Sex: Female
  Weight: 108.8633 kg

DRUGS (5)
  1. BERINERT [Suspect]
     Indication: HEREDITARY ANGIOEDEMA
     Dosage: (2000 IU, AS A RATE OF 4 ML/MIN INTRAVENOUS), (2000 IU INTRAVENOUS)
     Route: 042
     Dates: start: 20100414, end: 20100414
  2. BERINERT [Suspect]
     Indication: HEREDITARY ANGIOEDEMA
     Dosage: (2000 IU, AS A RATE OF 4 ML/MIN INTRAVENOUS), (2000 IU INTRAVENOUS)
     Route: 042
     Dates: start: 20100429, end: 20100429
  3. DANAZOL [Concomitant]
  4. EXCEDRIN E.S. (THOMAPYRIN N) [Concomitant]
  5. PULMICORT [Concomitant]

REACTIONS (2)
  - INFUSION RELATED REACTION [None]
  - STEVENS-JOHNSON SYNDROME [None]
